FAERS Safety Report 6901660-3 (Version None)
Quarter: 2010Q3

REPORT INFORMATION
  Report Type: 
  Country: None (occurrence: None)
  Receive Date: 20100803
  Receipt Date: 20100726
  Transmission Date: 20110219
  Serious: Yes (Hospitalization)
  Sender: FDA-Public Use
  Company Number: US-AMGEN-KDL426838

PATIENT
  Age: 36 Year
  Sex: Male

DRUGS (7)
  1. SENSIPAR [Suspect]
     Indication: HYPERPARATHYROIDISM SECONDARY
  2. NIFEDIPINE [Concomitant]
  3. METOPROLOL [Concomitant]
  4. LEVETIRACETAM [Concomitant]
  5. CETRIZIN [Concomitant]
  6. CALCIUM ACETATE [Concomitant]
  7. UNSPECIFIED MEDICATION [Concomitant]

REACTIONS (9)
  - ASTHENIA [None]
  - BONE PAIN [None]
  - CHOLECYSTITIS ACUTE [None]
  - CLOSTRIDIUM TEST POSITIVE [None]
  - MUSCLE CONTRACTIONS INVOLUNTARY [None]
  - MUSCLE TWITCHING [None]
  - PAIN IN EXTREMITY [None]
  - PSEUDOMEMBRANOUS COLITIS [None]
  - SEPSIS [None]
